FAERS Safety Report 5460685-8 (Version None)
Quarter: 2007Q3

REPORT INFORMATION
  Report Type: 
  Country: None (occurrence: None)
  Receive Date: 20070919
  Receipt Date: 20070912
  Transmission Date: 20080115
  Serious: Yes (Hospitalization)
  Sender: FDA-Public Use
  Company Number: FR-ROXANE LABORATORIES, INC-2007-BP-20944RO

PATIENT
  Age: 36 Year
  Sex: Male

DRUGS (2)
  1. LITHIUM CARBONATE [Suspect]
     Indication: BIPOLAR DISORDER
     Route: 048
  2. VALPROATE SODIUM [Suspect]
     Indication: BIPOLAR DISORDER
     Route: 048

REACTIONS (2)
  - BRUGADA SYNDROME [None]
  - SYNCOPE [None]
